FAERS Safety Report 12490390 (Version 1)
Quarter: 2016Q2

REPORT INFORMATION
  Report Type: Report from Study
  Country: BR (occurrence: BR)
  Receive Date: 20160622
  Receipt Date: 20160622
  Transmission Date: 20160815
  Serious: Yes (Hospitalization, Other)
  Sender: FDA-Public Use
  Company Number: BR-SEATTLE GENETICS-2015SGN00881

PATIENT

DRUGS (4)
  1. BRENTUXIMAB VEDOTIN [Suspect]
     Active Substance: BRENTUXIMAB VEDOTIN
     Indication: HODGKIN^S DISEASE
     Dosage: 49.2 MG, Q2WEEKS
     Route: 042
     Dates: start: 20150211, end: 20150513
  2. DACARBAZINE. [Suspect]
     Active Substance: DACARBAZINE
     Indication: HODGKIN^S DISEASE
     Dosage: 497 MG, Q2WEEKS
     Route: 042
     Dates: start: 20150211, end: 20150513
  3. DOXORUBICIN [Suspect]
     Active Substance: DOXORUBICIN
     Indication: HODGKIN^S DISEASE
     Dosage: 33.13 MG, Q2WEEKS
     Route: 042
     Dates: start: 20150211, end: 20150513
  4. VINBLASTINE [Suspect]
     Active Substance: VINBLASTINE
     Indication: HODGKIN^S DISEASE
     Dosage: 8 MG, Q2WEEKS
     Route: 042
     Dates: start: 20150211, end: 20150513

REACTIONS (2)
  - Chronic obstructive pulmonary disease [Recovered/Resolved]
  - Sepsis [Recovered/Resolved]

NARRATIVE: CASE EVENT DATE: 20150515
